FAERS Safety Report 5913491-1 (Version None)
Quarter: 2008Q4

REPORT INFORMATION
  Report Type: 
  Country: None (occurrence: None)
  Receive Date: 20081009
  Receipt Date: 20080930
  Transmission Date: 20090506
  Serious: Yes (Life-Threatening, Hospitalization, Other)
  Sender: FDA-Public Use
  Company Number: DE-JNJFOC-20070805404

PATIENT
  Sex: Female

DRUGS (2)
  1. INVEGA [Suspect]
     Route: 048
  2. INVEGA [Suspect]
     Indication: SCHIZOPHRENIA
     Route: 048

REACTIONS (7)
  - INTENTIONAL OVERDOSE [None]
  - SCHIZOPHRENIA [None]
  - SOMNOLENCE [None]
  - SUICIDE ATTEMPT [None]
  - TORSADE DE POINTES [None]
  - TREMOR [None]
  - VENTRICULAR FIBRILLATION [None]
